FAERS Safety Report 7296617-X (Version None)
Quarter: 2011Q1

REPORT INFORMATION
  Report Type: 
  Country: None (occurrence: None)
  Receive Date: 20110216
  Receipt Date: 20110208
  Transmission Date: 20110831
  Serious: Yes (Life-Threatening, Other)
  Sender: FDA-Public Use
  Company Number: PHHY2011JP08719

PATIENT
  Age: 51 Year
  Sex: Male

DRUGS (4)
  1. CYCLOPHOSPHAMIDE [Suspect]
     Indication: INTERSTITIAL LUNG DISEASE
     Dosage: 2 MG/KG/DAY
     Route: 048
  2. STEROIDS NOS [Concomitant]
     Indication: INTERSTITIAL LUNG DISEASE
  3. PREDNISOLONE [Concomitant]
     Indication: INTERSTITIAL LUNG DISEASE
     Dosage: 1MG/KG
  4. PREDNISOLONE [Concomitant]
     Dosage: 12.5 MG/DAY

REACTIONS (3)
  - INTERSTITIAL LUNG DISEASE [None]
  - RESPIRATORY FAILURE [None]
  - BRONCHOPULMONARY ASPERGILLOSIS [None]
